FAERS Safety Report 15701313 (Version 3)
Quarter: 2019Q2

REPORT INFORMATION
  Report Type: Spontaneous
  Country: PT (occurrence: PT)
  Receive Date: 20181207
  Receipt Date: 20190619
  Transmission Date: 20190711
  Serious: Yes (Disabling)
  Sender: FDA-Public Use
  Company Number: PT-009507513-1811PRT009679

PATIENT
  Age: 58 Year
  Sex: Female

DRUGS (1)
  1. ADROVANCE [Suspect]
     Active Substance: ALENDRONATE SODIUM\CHOLECALCIFEROL
     Dosage: UNK, STRENGTH: 5600 (UNITS UNSPECIFIED), STARTED IN JUNE 30
     Route: 048

REACTIONS (7)
  - Insomnia [Unknown]
  - Goitre [Unknown]
  - Musculoskeletal pain [Not Recovered/Not Resolved]
  - Synovial cyst [Not Recovered/Not Resolved]
  - Arthralgia [Not Recovered/Not Resolved]
  - Thyroid mass [Not Recovered/Not Resolved]
  - Pain in extremity [Unknown]
